FAERS Safety Report 22171519 (Version 1)
Quarter: 2023Q2

REPORT INFORMATION
  Report Type: Spontaneous
  Country: US (occurrence: None)
  Receive Date: 20230403
  Receipt Date: 20230403
  Transmission Date: 20230722
  Serious: No
  Sender: FDA-Public Use
  Company Number: None

PATIENT
  Sex: Female
  Weight: 68.49 kg

DRUGS (4)
  1. SUNITINIB MALATE [Suspect]
     Active Substance: SUNITINIB MALATE
     Indication: Neuroendocrine tumour
     Dosage: 37.5MG DAILY ORAL?
     Route: 048
     Dates: start: 202301
  2. BIOTIN [Concomitant]
     Active Substance: BIOTIN
  3. LASIX [Concomitant]
     Active Substance: FUROSEMIDE
  4. VITAMINS [Concomitant]
     Active Substance: VITAMINS

REACTIONS (3)
  - Bradycardia [None]
  - Mental status changes [None]
  - Failure to thrive [None]
